FAERS Safety Report 6767081-1 (Version None)
Quarter: 2010Q2

REPORT INFORMATION
  Report Type: 
  Country: None (occurrence: None)
  Receive Date: 20100613
  Receipt Date: 20100601
  Transmission Date: 20101027
  Serious: Yes (Hospitalization)
  Sender: FDA-Public Use
  Company Number: DE-BRISTOL-MYERS SQUIBB COMPANY-15121866

PATIENT
  Age: 51 Year
  Sex: Male
  Weight: 51 kg

DRUGS (3)
  1. CETUXIMAB [Suspect]
     Indication: HEAD AND NECK CANCER
     Dosage: 5 MILLIGRAM/MILLILITERS;RECENT INF:17MAY10 INTERRUPTED ON 25MAY10.(61DAYS)
     Route: 042
     Dates: start: 20100324
  2. CISPLATIN [Suspect]
     Indication: HEAD AND NECK CANCER
     Dosage: RECENT INF:17MAY10 INTERRUPTED ON 17MAY10.(53DAYS)
     Route: 042
     Dates: start: 20100324
  3. FLUOROURACIL [Suspect]
     Indication: HEAD AND NECK CANCER
     Dosage: RECENT INF:17MAY10 INTERRUPTED ON 17MAY10.(52DAYS)
     Route: 042
     Dates: start: 20100325

REACTIONS (2)
  - DEHYDRATION [None]
  - MUCOSAL INFLAMMATION [None]
